FAERS Safety Report 21027383 (Version 1)
Quarter: 2022Q2

REPORT INFORMATION
  Report Type: Spontaneous
  Country: US (occurrence: US)
  Receive Date: 20220630
  Receipt Date: 20220630
  Transmission Date: 20220721
  Serious: No
  Sender: FDA-Public Use
  Company Number: US-ORGANON-O2206USA002539

PATIENT

DRUGS (2)
  1. PREGNYL [Suspect]
     Active Substance: CHORIOGONADOTROPIN ALFA
     Indication: Weight decreased
     Dosage: UNK
  2. STERILE WATER [Suspect]
     Active Substance: WATER
     Dosage: UNK

REACTIONS (1)
  - Intercepted medication error [Unknown]

NARRATIVE: CASE EVENT DATE: 20220627
